FAERS Safety Report 15310318 (Version 1)
Quarter: 2018Q3

REPORT INFORMATION
  Report Type: Spontaneous
  Country: US (occurrence: US)
  Receive Date: 20180823
  Receipt Date: 20180823
  Transmission Date: 20181010
  Serious: No
  Sender: FDA-Public Use
  Company Number: US-ALVOGEN-2018-ALVOGEN-096777

PATIENT
  Sex: Female

DRUGS (1)
  1. FENTANYL. [Suspect]
     Active Substance: FENTANYL
     Indication: PRODUCT USED FOR UNKNOWN INDICATION
     Route: 062

REACTIONS (8)
  - Malaise [Unknown]
  - Pain [Unknown]
  - Nausea [Unknown]
  - Ill-defined disorder [Unknown]
  - Drug ineffective [Unknown]
  - Retching [Unknown]
  - Tremor [Unknown]
  - Dizziness [Unknown]
